FAERS Safety Report 6756505-1 (Version None)
Quarter: 2010Q2

REPORT INFORMATION
  Report Type: 
  Country: None (occurrence: None)
  Receive Date: 20100604
  Receipt Date: 20100527
  Transmission Date: 20101027
  Serious: Yes (Hospitalization)
  Sender: FDA-Public Use
  Company Number: B0650288A

PATIENT
  Sex: Male

DRUGS (2)
  1. LAMICTAL [Suspect]
     Indication: EPILEPSY
     Dosage: 10MG PER DAY
     Route: 048
     Dates: start: 20100129, end: 20100423
  2. SELENICA-R [Suspect]
     Indication: DRUG USE FOR UNKNOWN INDICATION
     Route: 048

REACTIONS (3)
  - CONJUNCTIVAL HYPERAEMIA [None]
  - ERYTHEMA OF EYELID [None]
  - RASH [None]
